FAERS Safety Report 5008539-5 (Version None)
Quarter: 2006Q2

REPORT INFORMATION
  Report Type: 
  Country: None (occurrence: None)
  Receive Date: 20060518
  Receipt Date: 20060215
  Transmission Date: 20061013
  Serious: Yes (Other)
  Sender: FDA-Public Use
  Company Number: 200611922GDS

PATIENT
  Age: 73 Year
  Sex: Male
  Weight: 76.5 kg

DRUGS (4)
  1. SORAFENIB [Suspect]
     Indication: MALIGNANT MELANOMA
     Dosage: 800 MG, TOTAL DAILY, ORAL
     Route: 048
     Dates: start: 20060206, end: 20060213
  2. TAXOL [Suspect]
     Indication: MALIGNANT MELANOMA
     Dosage: 411.75 MG, TOTAL DAILY, INTRAVENOUS
     Route: 042
     Dates: start: 20060206
  3. CARBOPLATIN [Suspect]
     Indication: MALIGNANT MELANOMA
     Dosage: 723 MG, TOTAL DAILY, INTRAVENOUS
     Route: 042
     Dates: start: 20060206
  4. MS CONTIN [Concomitant]

REACTIONS (1)
  - TRANSIENT ISCHAEMIC ATTACK [None]
